FAERS Safety Report 7581726-8 (Version None)
Quarter: 2011Q2

REPORT INFORMATION
  Report Type: 
  Country: None (occurrence: None)
  Receive Date: 20110629
  Receipt Date: 20110614
  Transmission Date: 20111010
  Serious: Yes (Hospitalization, Other)
  Sender: FDA-Public Use
  Company Number: US-BAYER-201020796NA

PATIENT
  Age: 37 Year
  Sex: Female
  Weight: 85 kg

DRUGS (16)
  1. METOCLOPRAMIDE [Concomitant]
     Indication: HIATUS HERNIA
  2. METOCLOPRAMIDE [Concomitant]
  3. ATENOLOL [Concomitant]
     Indication: SINUS TACHYCARDIA
     Dosage: 25 MG, UNK
     Route: 048
     Dates: start: 20060227, end: 20000201
  4. BENTYL [Concomitant]
     Indication: PRODUCT USED FOR UNKNOWN INDICATION
  5. CARTIA XT [Concomitant]
  6. ZOLOFT [Concomitant]
     Indication: PRODUCT USED FOR UNKNOWN INDICATION
     Dates: start: 20060227
  7. METOCLOPRAMIDE [Concomitant]
     Indication: IMPAIRED GASTRIC EMPTYING
     Dates: start: 20070420
  8. PROTON PUMP INHIBITORS [Concomitant]
     Indication: HIATUS HERNIA
  9. PROTON PUMP INHIBITORS [Concomitant]
     Indication: GASTROOESOPHAGEAL REFLUX DISEASE
  10. YASMIN [Suspect]
     Indication: CONTRACEPTION
  11. XANAX [Concomitant]
     Indication: ANXIETY
     Dates: start: 20060227
  12. YASMIN [Suspect]
     Indication: PREMENSTRUAL SYNDROME
     Dosage: UNK
     Route: 048
     Dates: start: 20040901, end: 20051001
  13. PROTON PUMP INHIBITORS [Concomitant]
     Indication: IMPAIRED GASTRIC EMPTYING
     Dates: start: 20070420
  14. ALPRAZOLAM [Concomitant]
     Indication: ANXIETY
     Dosage: 1 MG, AS NEEDED
     Route: 048
     Dates: start: 20060301, end: 20091001
  15. YASMIN [Suspect]
  16. ZANTAC [Concomitant]
     Indication: GASTROOESOPHAGEAL REFLUX DISEASE

REACTIONS (12)
  - CHOLECYSTITIS [None]
  - MENTAL DISORDER [None]
  - ABDOMINAL PAIN UPPER [None]
  - TACHYCARDIA [None]
  - DYSPNOEA [None]
  - DIZZINESS [None]
  - PALPITATIONS [None]
  - CHEST PAIN [None]
  - PANIC ATTACK [None]
  - ARRHYTHMIA [None]
  - CHOLELITHIASIS [None]
  - ABDOMINAL PAIN [None]
